FAERS Safety Report 7810555-2 (Version None)
Quarter: 2011Q4

REPORT INFORMATION
  Report Type: 
  Country: None (occurrence: None)
  Receive Date: 20111013
  Receipt Date: 20111005
  Transmission Date: 20120403
  Serious: Yes (Hospitalization)
  Sender: FDA-Public Use
  Company Number: US-BIOGENIDEC-2011BI038620

PATIENT
  Sex: Female

DRUGS (1)
  1. TYSABRI [Suspect]
     Indication: MULTIPLE SCLEROSIS
     Route: 042
     Dates: start: 20110422

REACTIONS (10)
  - HEADACHE [None]
  - ATROPHY [None]
  - PAIN [None]
  - CENTRAL VENOUS CATHETERISATION [None]
  - CONVULSION [None]
  - STAPHYLOCOCCAL INFECTION [None]
  - VOMITING [None]
  - FEELING ABNORMAL [None]
  - ARTHRALGIA [None]
  - WEIGHT DECREASED [None]
